FAERS Safety Report 8450903-6 (Version None)
Quarter: 2012Q2

REPORT INFORMATION
  Report Type: 
  Country: None (occurrence: None)
  Receive Date: 20120620
  Receipt Date: 20120611
  Transmission Date: 20120825
  Serious: Yes (Hospitalization)
  Sender: FDA-Public Use
  Company Number: FR-ASTRAZENECA-2012SE39223

PATIENT
  Age: 20878 Day
  Sex: Male

DRUGS (11)
  1. MAGNE B6 [Concomitant]
  2. DECAN [Concomitant]
  3. DUPHALAC [Concomitant]
  4. DIPRIVAN [Suspect]
     Indication: GENERAL ANAESTHESIA
     Route: 042
     Dates: start: 20120330, end: 20120330
  5. NOROXIN [Concomitant]
  6. NEXIUM [Concomitant]
  7. ACETAMINOPHEN [Concomitant]
  8. PROPRANOLOL [Concomitant]
  9. FOLIC ACID [Concomitant]
  10. ALDACTONE [Concomitant]
  11. AZINC OPTIMAL [Concomitant]

REACTIONS (1)
  - ENCEPHALOPATHY [None]
